FAERS Safety Report 7117266-X (Version None)
Quarter: 2010Q4

REPORT INFORMATION
  Report Type: 
  Country: None (occurrence: None)
  Receive Date: 20101122
  Receipt Date: 20101102
  Transmission Date: 20110411
  Serious: Yes (Hospitalization, Other)
  Sender: FDA-Public Use
  Company Number: PHHY2009JP26369

PATIENT
  Sex: Female

DRUGS (6)
  1. EXJADE [Suspect]
     Indication: MYELODYSPLASTIC SYNDROME
     Dosage: 1000 MG DAILY
     Route: 048
     Dates: start: 20080911, end: 20080920
  2. EXJADE [Suspect]
     Indication: IRON OVERLOAD
  3. PRIMOBOLAN [Concomitant]
     Indication: MYELODYSPLASTIC SYNDROME
     Dosage: 15MG
     Route: 048
     Dates: start: 20080911, end: 20080921
  4. LASIX [Concomitant]
     Dosage: 20MG
     Route: 048
     Dates: start: 20080911, end: 20080921
  5. BASEN [Concomitant]
     Dosage: 0.6MG
     Route: 048
     Dates: start: 20080926, end: 20081009
  6. AMARYL [Concomitant]
     Dosage: 3MG
     Route: 048
     Dates: start: 20080921, end: 20081009

REACTIONS (3)
  - INFECTION [None]
  - PYREXIA [None]
  - RASH [None]
